FAERS Safety Report 8898094 (Version 1)
Quarter: 2012Q4

REPORT INFORMATION
  Report Type: 
  Country: US (occurrence: US)
  Receive Date: 20121108
  Receipt Date: 20121108
  Transmission Date: 20130627
  Serious: No
  Sender: FDA-Public Use
  Company Number: US-AMGEN-USASP2012030619

PATIENT
  Age: 58 Year
  Sex: Female
  Weight: 74.38 kg

DRUGS (17)
  1. ENBREL [Suspect]
     Indication: PRODUCT USED FOR UNKNOWN INDICATION
     Dosage: 50 mg, qwk
     Route: 058
  2. FORTEO [Concomitant]
     Dosage: UNK
  3. ADVAIR [Concomitant]
     Dosage: UNK
  4. VERAPAMIL [Concomitant]
     Dosage: 120 mg, UNK
  5. ALTACE [Concomitant]
     Dosage: 1.25 mg, UNK
  6. LASIX                              /00032601/ [Concomitant]
     Dosage: 40 mg, UNK
  7. METHOTREXATE [Concomitant]
     Dosage: 2.5 mg, UNK
  8. ZYRTEC [Concomitant]
     Dosage: 5 mg, UNK
  9. MELOXICAM [Concomitant]
     Dosage: 15 mg, UNK
  10. FOLIC ACID [Concomitant]
     Dosage: UNK
  11. SYNTHROID [Concomitant]
     Dosage: 137 mug, UNK
  12. PRAVASTATIN [Concomitant]
     Dosage: 20 mg, UNK
  13. IBUPROFEN [Concomitant]
     Dosage: 200 mg, UNK
  14. VITAMIN D /00107901/ [Concomitant]
     Dosage: UNK
  15. VITAMIN B12                        /00056201/ [Concomitant]
     Dosage: UNK
  16. VITAMIN B6 [Concomitant]
     Dosage: 250 mg, UNK
  17. XOLAIR [Concomitant]
     Dosage: 150 mg, UNK

REACTIONS (2)
  - Injection site erythema [Unknown]
  - Injection site bruising [Unknown]
